FAERS Safety Report 4844926-3 (Version None)
Quarter: 2005Q4

REPORT INFORMATION
  Report Type: 
  Country: None (occurrence: None)
  Receive Date: 20051128
  Receipt Date: 20051114
  Transmission Date: 20060501
  Serious: Yes (Death, Hospitalization)
  Sender: FDA-Public Use
  Company Number: GXKR2005GB01810

PATIENT
  Age: 83 Year
  Sex: Male
  Weight: 68 kg

DRUGS (9)
  1. ATENOLOL [Suspect]
     Indication: HYPERTENSION
     Dosage: 50 MG QD ORAL
     Route: 048
     Dates: end: 20040601
  2. EFFEXOR XR [Suspect]
     Indication: DEPRESSION
     Dosage: 75 MG QD ORAL
     Route: 048
     Dates: start: 20031101, end: 20031201
  3. ASPIRIN [Concomitant]
  4. BENDROFLUAZIDE             (BENDROFLUMETHIAZIDE) [Concomitant]
  5. LATANOPROST [Concomitant]
  6. SENNA              (SENNA, SENNA ALEXANDRINA) [Concomitant]
  7. TIMOLOL MALEATE [Concomitant]
  8. ZOLPIDEM TARTRATE [Concomitant]
  9. BETA BLOCKING AGENTS [Concomitant]

REACTIONS (4)
  - CARDIAC FAILURE [None]
  - DRUG INEFFECTIVE [None]
  - GENERAL PHYSICAL HEALTH DETERIORATION [None]
  - TACHYCARDIA [None]
